FAERS Safety Report 9254848 (Version 3)
Quarter: 2013Q2

REPORT INFORMATION
  Report Type: Report from Study
  Country: DE (occurrence: DE)
  Receive Date: 20130425
  Receipt Date: 20130624
  Transmission Date: 20140414
  Serious: Yes (Hospitalization)
  Sender: FDA-Public Use
  Company Number: DE-ROCHE-1218011

PATIENT
  Age: 73 Year
  Sex: Male
  Weight: 90 kg

DRUGS (2)
  1. TOCILIZUMAB [Suspect]
     Indication: RHEUMATOID ARTHRITIS
     Route: 042
     Dates: start: 20120308, end: 201203
  2. TOCILIZUMAB [Suspect]
     Route: 042
     Dates: start: 201207

REACTIONS (2)
  - Umbilical hernia [Recovering/Resolving]
  - Atrial fibrillation [Recovering/Resolving]
